FAERS Safety Report 24055402 (Version 1)
Quarter: 2024Q3

REPORT INFORMATION
  Report Type: Spontaneous
  Country: US (occurrence: None)
  Receive Date: 20240703
  Receipt Date: 20240703
  Transmission Date: 20241017
  Serious: Yes (Other)
  Sender: Public
  Company Number: None

PATIENT
  Age: 31 Year
  Sex: Female
  Weight: 48.15 kg

DRUGS (1)
  1. HERBALS\MUSHROOMS UNSPECIFIED [Suspect]
     Active Substance: HERBALS\MUSHROOMS UNSPECIFIED
     Indication: Substance use
     Dosage: 1 1 GUMMY
     Dates: start: 20240701, end: 20240701

REACTIONS (6)
  - Chest pain [None]
  - Loss of consciousness [None]
  - Head injury [None]
  - Concussion [None]
  - Neck injury [None]
  - Fall [None]

NARRATIVE: CASE EVENT DATE: 20240701
